FAERS Safety Report 6848869-5 (Version None)
Quarter: 2010Q3

REPORT INFORMATION
  Report Type: 
  Country: None (occurrence: None)
  Receive Date: 20100716
  Receipt Date: 20071220
  Transmission Date: 20110219
  Serious: No
  Sender: FDA-Public Use
  Company Number: US-PFIZER INC-2007074794

PATIENT
  Sex: Female

DRUGS (3)
  1. CHANTIX [Suspect]
     Indication: SMOKING CESSATION THERAPY
     Route: 048
     Dates: start: 20070829
  2. ANTIHYPERTENSIVES [Concomitant]
     Indication: HYPERTENSION
  3. NEXIUM [Concomitant]

REACTIONS (2)
  - CONSTIPATION [None]
  - DYSPNOEA [None]
